FAERS Safety Report 19198238 (Version 1)
Quarter: 2021Q2

REPORT INFORMATION
  Report Type: Spontaneous
  Country: PT (occurrence: PT)
  Receive Date: 20210430
  Receipt Date: 20210430
  Transmission Date: 20210717
  Serious: Yes (Life-Threatening, Hospitalization)
  Sender: FDA-Public Use
  Company Number: PT-ROCHE-2821126

PATIENT
  Age: 79 Year
  Sex: Female

DRUGS (1)
  1. ROACTEMRA [Suspect]
     Active Substance: TOCILIZUMAB
     Indication: RHEUMATOID ARTHRITIS
     Route: 065
     Dates: start: 20190826, end: 20201231

REACTIONS (2)
  - Urosepsis [Recovered/Resolved]
  - Pyelitis [Recovered/Resolved]

NARRATIVE: CASE EVENT DATE: 20201220
